FAERS Safety Report 8320452-4 (Version None)
Quarter: 2012Q2

REPORT INFORMATION
  Report Type: 
  Country: None (occurrence: None)
  Receive Date: 20120426
  Receipt Date: 20120426
  Transmission Date: 20120825
  Serious: No
  Sender: FDA-Public Use
  Company Number: None

PATIENT
  Sex: Male

DRUGS (2)
  1. RISPERDAL [Suspect]
     Indication: AUTISM
     Dosage: 1 BID PO
     Route: 048
     Dates: start: 20080101
  2. RISPERDAL [Suspect]
     Indication: EPILEPSY
     Dosage: 1 BID PO
     Route: 048
     Dates: start: 20080101

REACTIONS (2)
  - TIC [None]
  - ABNORMAL BEHAVIOUR [None]
